FAERS Safety Report 8805321 (Version 2)
Quarter: 2012Q4

REPORT INFORMATION
  Report Type: 
  Country: GB (occurrence: GB)
  Receive Date: 20120924
  Receipt Date: 20121004
  Transmission Date: 20130627
  Serious: Yes (Hospitalization)
  Sender: FDA-Public Use
  Company Number: GB-VERTEX PHARMACEUTICAL INC.-2012-021750

PATIENT
  Age: 54 Year
  Sex: Male
  Weight: 94 kg

DRUGS (10)
  1. VX-950 [Suspect]
     Indication: HEPATITIS C
     Dosage: 750 mg, tid
     Route: 048
     Dates: start: 20110901, end: 20111123
  2. REBETOL [Concomitant]
     Indication: HEPATITIS C
     Dosage: 400 mg, bid
     Route: 048
  3. REBETOL [Concomitant]
     Dosage: 600 mg, bid
     Route: 048
  4. REBETOL [Concomitant]
     Dosage: 600 mg, qd
     Route: 048
  5. REBETOL [Concomitant]
     Dosage: Dosage Form: Tablets
     Route: 048
  6. PEGASYS [Concomitant]
     Indication: HEPATITIS C
     Route: 058
  7. PEGASYS [Concomitant]
  8. CO-CODAMOL [Concomitant]
     Indication: PRODUCT USED FOR UNKNOWN INDICATION
     Dosage: 1 DF, prn
     Route: 048
  9. CO-CODAMOL [Concomitant]
     Dosage: Dosage Form: Unspecified
  10. LISINOPRIL [Concomitant]
     Indication: HYPERTENSION
     Dosage: UNK UNK, qd
     Route: 048
     Dates: end: 20111019

REACTIONS (5)
  - Alanine aminotransferase increased [Not Recovered/Not Resolved]
  - Renal impairment [Unknown]
  - Blood creatinine increased [Recovered/Resolved]
  - Anaemia [Unknown]
  - Drug ineffective [Unknown]
